FAERS Safety Report 20860951 (Version 1)
Quarter: 2022Q2

REPORT INFORMATION
  Report Type: Spontaneous
  Country: US (occurrence: US)
  Receive Date: 20220523
  Receipt Date: 20220523
  Transmission Date: 20220721
  Serious: Yes (Hospitalization)
  Sender: FDA-Public Use
  Company Number: US-drreddys-LIT/USA/22/0150195

PATIENT
  Age: 52 Year
  Sex: Male

DRUGS (12)
  1. PANTOPRAZOLE SODIUM [Interacting]
     Active Substance: PANTOPRAZOLE SODIUM
     Indication: Product used for unknown indication
     Route: 048
  2. POSACONAZOLE [Interacting]
     Active Substance: POSACONAZOLE
     Indication: Antifungal prophylaxis
     Route: 042
  3. POSACONAZOLE [Interacting]
     Active Substance: POSACONAZOLE
     Route: 048
  4. POSACONAZOLE [Interacting]
     Active Substance: POSACONAZOLE
     Route: 048
  5. TACROLIMUS [Concomitant]
     Active Substance: TACROLIMUS
     Indication: Prophylaxis against graft versus host disease
  6. BUSULFAN [Concomitant]
     Active Substance: BUSULFAN
     Indication: Myeloid leukaemia
     Dosage: AREA UNDER THE CURVE TARGET OF 6,000
  7. FLUDARABINE [Concomitant]
     Active Substance: FLUDARABINE PHOSPHATE
     Indication: Myeloid leukaemia
  8. ALDESLEUKIN [Concomitant]
     Active Substance: ALDESLEUKIN
     Indication: Myeloid leukaemia
  9. CYCLOPHOSPHAMIDE [Concomitant]
     Active Substance: CYCLOPHOSPHAMIDE
     Indication: Prophylaxis against graft versus host disease
  10. VALACYCLOVIR [Concomitant]
     Active Substance: VALACYCLOVIR HYDROCHLORIDE
     Indication: Product used for unknown indication
     Route: 048
  11. LETERMOVIR [Concomitant]
     Active Substance: LETERMOVIR
     Indication: Product used for unknown indication
     Route: 048
  12. ENTECAVIR [Concomitant]
     Active Substance: ENTECAVIR
     Indication: Product used for unknown indication
     Route: 048

REACTIONS (2)
  - Therapeutic response decreased [Unknown]
  - Drug interaction [Unknown]
